FAERS Safety Report 4921012-5 (Version None)
Quarter: 2006Q1

REPORT INFORMATION
  Report Type: 
  Country: None (occurrence: None)
  Receive Date: 20060223
  Receipt Date: 20060213
  Transmission Date: 20060701
  Serious: Yes (Other)
  Sender: FDA-Public Use
  Company Number: PT-MERCK-0602PRT00009

PATIENT
  Age: 70 Year
  Sex: Female
  Weight: 70 kg

DRUGS (6)
  1. ZOCOR [Suspect]
     Indication: BLOOD CHOLESTEROL INCREASED
     Route: 048
     Dates: start: 20051201, end: 20060120
  2. ZOCOR [Suspect]
     Route: 048
     Dates: end: 20051001
  3. LEVOTHYROXINE SODIUM [Concomitant]
     Indication: HYPOTHYROIDISM
     Route: 048
     Dates: start: 20030101, end: 20060120
  4. LEVOTHYROXINE SODIUM [Concomitant]
     Route: 048
     Dates: start: 20060124
  5. PRINIVIL [Concomitant]
     Indication: HYPERTENSION
     Route: 048
     Dates: start: 20030101, end: 20060120
  6. PRINIVIL [Concomitant]
     Route: 048
     Dates: start: 20060124

REACTIONS (8)
  - ANOREXIA [None]
  - APATHY [None]
  - FACE OEDEMA [None]
  - NAUSEA [None]
  - OEDEMA PERIPHERAL [None]
  - TONGUE DISCOLOURATION [None]
  - TREMOR [None]
  - URINARY TRACT INFECTION [None]
